FAERS Safety Report 9094325 (Version 1)
Quarter: 2012Q4

REPORT INFORMATION
  Report Type: Spontaneous
  Country: US (occurrence: None)
  Receive Date: 20120910
  Receipt Date: 20120910
  Transmission Date: 20130627
  Serious: Yes (Congenital Anomaly)
  Sender: FDA-Public Use
  Company Number: M-10-012

PATIENT
  Sex: Male

DRUGS (7)
  1. LEVOTHYROXINE SODIUM [Suspect]
     Indication: THYROID DISORDER
     Dosage: Unknown,  oral tablets
     Route: 048
  2. PROVIGIL [Concomitant]
  3. METFORMIN [Concomitant]
  4. BUSPAR (BUSPIRONE) [Concomitant]
  5. LEXAPRO (ESCITALOPRAM OXALATE) [Concomitant]
  6. NASONEX (MOMETASONE FUROATE MONOHYDRATE) [Concomitant]
  7. OB NATAL ONE VITAMINS [Concomitant]

REACTIONS (3)
  - Ventricular septal defect [None]
  - Transposition of the great vessels [None]
  - Maternal drugs affecting foetus [None]
